FAERS Safety Report 17911113 (Version 1)
Quarter: 2020Q2

REPORT INFORMATION
  Report Type: Spontaneous
  Country: MX (occurrence: MX)
  Receive Date: 20200618
  Receipt Date: 20200618
  Transmission Date: 20200714
  Serious: Yes (Other)
  Sender: FDA-Public Use
  Company Number: MX-INFO-001035

PATIENT
  Age: 61 Year
  Sex: Male

DRUGS (1)
  1. CIPROFLOXACIN. [Suspect]
     Active Substance: CIPROFLOXACIN
     Indication: PROSTATITIS
     Route: 065

REACTIONS (1)
  - Type 2 lepra reaction [Recovered/Resolved]
